FAERS Safety Report 7558456-1 (Version None)
Quarter: 2011Q2

REPORT INFORMATION
  Report Type: 
  Country: None (occurrence: None)
  Receive Date: 20110620
  Receipt Date: 20110614
  Transmission Date: 20111010
  Serious: Yes (Hospitalization)
  Sender: FDA-Public Use
  Company Number: US-GILEAD-2011-0040322

PATIENT
  Sex: Female

DRUGS (6)
  1. LETAIRIS [Suspect]
     Indication: PULMONARY HYPERTENSION
  2. POTASSIUM [Concomitant]
  3. LASIX [Concomitant]
  4. LORATADINE [Concomitant]
  5. ADCIRCA [Concomitant]
  6. LETAIRIS [Suspect]
     Indication: HEART DISEASE CONGENITAL
     Route: 048
     Dates: start: 20110601

REACTIONS (2)
  - HYPOTENSION [None]
  - PULMONARY ARTERIAL HYPERTENSION [None]
